FAERS Safety Report 5588619-6 (Version None)
Quarter: 2008Q1

REPORT INFORMATION
  Report Type: 
  Country: None (occurrence: None)
  Receive Date: 20080111
  Receipt Date: 20080102
  Transmission Date: 20080703
  Serious: Yes (Other)
  Sender: FDA-Public Use
  Company Number: DE-PFIZER INC-2007096187

PATIENT
  Sex: Male
  Weight: 104 kg

DRUGS (5)
  1. CAVERJECT [Suspect]
     Indication: ERECTILE DYSFUNCTION
  2. VESDIL [Concomitant]
  3. NIFEDIPINE [Concomitant]
     Route: 048
  4. TOREM COR [Concomitant]
     Route: 048
  5. METOPROLOL [Concomitant]
     Route: 048

REACTIONS (1)
  - POLLAKIURIA [None]
